FAERS Safety Report 18262479 (Version 1)
Quarter: 2020Q3

REPORT INFORMATION
  Report Type: Spontaneous
  Country: US (occurrence: US)
  Receive Date: 20200911
  Receipt Date: 20200911
  Transmission Date: 20201103
  Serious: Yes (Other)
  Sender: FDA-Public Use
  Company Number: None

PATIENT
  Age: 65 Year
  Sex: Female
  Weight: 100.9 kg

DRUGS (1)
  1. FOSPHENYTOIN [Suspect]
     Active Substance: FOSPHENYTOIN
     Indication: STATUS EPILEPTICUS
     Dosage: ?          OTHER FREQUENCY:ONCE;?
     Route: 040
     Dates: start: 20200810, end: 20200812

REACTIONS (1)
  - Anticonvulsant drug level below therapeutic [None]

NARRATIVE: CASE EVENT DATE: 20200810
